FAERS Safety Report 5250398-X (Version None)
Quarter: 2007Q1

REPORT INFORMATION
  Report Type: 
  Country: None (occurrence: None)
  Receive Date: 20070228
  Receipt Date: 20060427
  Transmission Date: 20070707
  Serious: No
  Sender: FDA-Public Use
  Company Number: 606642

PATIENT
  Age: 50 Year
  Sex: Female
  Weight: 66.4 kg

DRUGS (6)
  1. LAMICTAL [Suspect]
     Indication: BIPOLAR DISORDER
     Dosage: 100MG PER DAY
     Route: 048
     Dates: start: 20060209, end: 20060407
  2. SYNTHROID [Concomitant]
  3. EFFEXOR XR [Concomitant]
     Dosage: 300MG PER DAY
     Route: 048
  4. ABILIFY [Concomitant]
     Dosage: 15MG TWICE PER DAY
     Route: 048
  5. GABITRIL [Concomitant]
     Dosage: 4MG TWICE PER DAY
     Route: 048
  6. XANAX [Concomitant]
     Dosage: 1MG AS REQUIRED
     Route: 048

REACTIONS (1)
  - RASH [None]
